FAERS Safety Report 6610648-1 (Version None)
Quarter: 2010Q1

REPORT INFORMATION
  Report Type: 
  Country: None (occurrence: None)
  Receive Date: 20100302
  Receipt Date: 20100226
  Transmission Date: 20100710
  Serious: Yes (Hospitalization)
  Sender: FDA-Public Use
  Company Number: A0844776A

PATIENT
  Sex: Female

DRUGS (2)
  1. ZANTAC [Suspect]
     Dosage: 150MG UNKNOWN
     Route: 065
  2. ADVAIR DISKUS 100/50 [Concomitant]

REACTIONS (2)
  - CARDIAC FAILURE CONGESTIVE [None]
  - OEDEMA PERIPHERAL [None]
